FAERS Safety Report 6819675-2 (Version None)
Quarter: 2010Q3

REPORT INFORMATION
  Report Type: 
  Country: None (occurrence: None)
  Receive Date: 20100707
  Receipt Date: 20100628
  Transmission Date: 20110219
  Serious: Yes (Death, Other)
  Sender: FDA-Public Use
  Company Number: DE-SANOFI-AVENTIS-2010SA037332

PATIENT
  Age: 78 Year
  Sex: Male
  Weight: 69 kg

DRUGS (8)
  1. DOCETAXEL [Suspect]
     Indication: METASTATIC GASTRIC CANCER
     Route: 041
     Dates: start: 20100602, end: 20100602
  2. DOCETAXEL [Suspect]
     Route: 041
     Dates: start: 20100616, end: 20100616
  3. OXALIPLATIN [Suspect]
     Indication: METASTATIC GASTRIC CANCER
     Route: 041
     Dates: start: 20100602, end: 20100602
  4. OXALIPLATIN [Suspect]
     Route: 041
     Dates: start: 20100616, end: 20100616
  5. FLUOROURACIL [Suspect]
     Indication: METASTATIC GASTRIC CANCER
     Route: 041
     Dates: start: 20100602, end: 20100602
  6. FLUOROURACIL [Suspect]
     Route: 041
     Dates: start: 20100616, end: 20100616
  7. FOLINIC ACID [Suspect]
     Indication: METASTATIC GASTRIC CANCER
     Route: 041
     Dates: start: 20100602, end: 20100602
  8. FOLINIC ACID [Suspect]
     Route: 041
     Dates: start: 20100616, end: 20100616

REACTIONS (3)
  - CARDIAC FAILURE [None]
  - RESPIRATORY FAILURE [None]
  - SEPSIS [None]
